FAERS Safety Report 13682311 (Version 4)
Quarter: 2018Q3

REPORT INFORMATION
  Report Type: Spontaneous
  Country: US (occurrence: US)
  Receive Date: 20170623
  Receipt Date: 20180717
  Transmission Date: 20181010
  Serious: Yes (Other)
  Sender: FDA-Public Use
  Company Number: US-MALLINCKRODT-T201606089

PATIENT
  Age: 41 Year
  Sex: Male

DRUGS (3)
  1. H.P. ACTHAR [Suspect]
     Active Substance: CORTICOTROPIN
     Indication: SPONDYLOARTHROPATHY
     Dosage: 80 UNITS, 2 TIMES WEEKLY
     Route: 058
     Dates: start: 201602, end: 201612
  2. REMICADE [Concomitant]
     Active Substance: INFLIXIMAB
     Indication: PRODUCT USED FOR UNKNOWN INDICATION
     Dosage: UNK
     Route: 065
  3. H.P. ACTHAR [Suspect]
     Active Substance: CORTICOTROPIN
     Indication: ANKYLOSING SPONDYLITIS
     Dosage: 40 UNITS / .5 ML, 2 TIMES PER WEEK (SUNDAY AND THURSDAY)
     Route: 058
     Dates: start: 20160901

REACTIONS (14)
  - Gastrooesophageal reflux disease [Unknown]
  - Pain [Unknown]
  - Musculoskeletal stiffness [Unknown]
  - Urinary retention [Unknown]
  - Osteoarthritis [Unknown]
  - Irritable bowel syndrome [Unknown]
  - Mobility decreased [Unknown]
  - Hernia [Recovering/Resolving]
  - Blood glucose increased [Unknown]
  - Intentional dose omission [Unknown]
  - Inflammation [Unknown]
  - Cyst [Recovering/Resolving]
  - Infection [Unknown]
  - Oedema [Unknown]

NARRATIVE: CASE EVENT DATE: 20160901
